FAERS Safety Report 25501469 (Version 1)
Quarter: 2025Q3

REPORT INFORMATION
  Report Type: Spontaneous
  Country: GB (occurrence: GB)
  Receive Date: 20250701
  Receipt Date: 20250701
  Transmission Date: 20251021
  Serious: Yes (Hospitalization)
  Sender: ORGANON
  Company Number: None

PATIENT
  Age: 48 Year
  Sex: Female
  Weight: 78 kg

DRUGS (4)
  1. MIRTAZAPINE [Suspect]
     Active Substance: MIRTAZAPINE
     Indication: Insomnia
     Dates: start: 20250417
  2. ESTRADIOL\NORETHINDRONE ACETATE [Concomitant]
     Active Substance: ESTRADIOL\NORETHINDRONE ACETATE
  3. CANDESARTAN [Concomitant]
     Active Substance: CANDESARTAN
  4. OMEPRAZOLE [Concomitant]
     Active Substance: OMEPRAZOLE

REACTIONS (5)
  - Palpitations [Not Recovered/Not Resolved]
  - Anxiety [Not Recovered/Not Resolved]
  - Panic attack [Not Recovered/Not Resolved]
  - Cough [Not Recovered/Not Resolved]
  - Product use in unapproved indication [Unknown]

NARRATIVE: CASE EVENT DATE: 20250417
